FAERS Safety Report 16066102 (Version 1)
Quarter: 2019Q1

REPORT INFORMATION
  Report Type: Spontaneous
  Country: TR (occurrence: TR)
  Receive Date: 20190313
  Receipt Date: 20190313
  Transmission Date: 20190418
  Serious: Yes (Hospitalization)
  Sender: FDA-Public Use
  Company Number: TR-UCBSA-2019009597

PATIENT
  Age: 65 Year
  Sex: Female
  Weight: 90 kg

DRUGS (3)
  1. KEPPRA [Suspect]
     Active Substance: LEVETIRACETAM
     Indication: PRODUCT USED FOR UNKNOWN INDICATION
     Dosage: 1000 MG , DAILY
     Route: 042
     Dates: start: 20190205, end: 20190218
  2. VANCOMYCIN [Concomitant]
     Active Substance: VANCOMYCIN
     Indication: PRODUCT USED FOR UNKNOWN INDICATION
     Dosage: 2 G, DAILY
     Route: 042
     Dates: start: 20190205, end: 20190219
  3. MEROPENEM. [Concomitant]
     Active Substance: MEROPENEM
     Indication: PRODUCT USED FOR UNKNOWN INDICATION
     Dosage: 2G, DAILLY
     Route: 042
     Dates: start: 20190205

REACTIONS (1)
  - Skin exfoliation [Recovering/Resolving]

NARRATIVE: CASE EVENT DATE: 20190215
